FAERS Safety Report 4696844-1 (Version None)
Quarter: 2005Q2

REPORT INFORMATION
  Report Type: 
  Country: None (occurrence: None)
  Receive Date: 20050620
  Receipt Date: 20050606
  Transmission Date: 20051028
  Serious: Yes (Death, Hospitalization)
  Sender: FDA-Public Use
  Company Number: HQWYE273806JUN05

PATIENT
  Age: 90 Year
  Sex: Male

DRUGS (5)
  1. PANTOPRAZOLE SODIUM [Suspect]
     Dosage: 40 MG 1 PER 1 DAY ORAL
     Route: 048
  2. AUGMENTIN (AMOXICILLIN SODIUM/CLAVULANATE POTASSIUM, ) [Suspect]
     Dosage: 1 DOSAGE FORM 1X PER 1 DAY ORAL
     Route: 048
     Dates: start: 20050331, end: 20050408
  3. FUROSEMIDE [Suspect]
     Dosage: 40 MG 1X PER 1 DAY, ORAL
     Route: 048
  4. ROVAMYCIN (SPIRAMYCIN, ) [Suspect]
     Dosage: 30 MIU 1X PER 1 DAY ORAL
     Route: 048
     Dates: end: 20050409
  5. TRAMADOL HCL [Suspect]
     Dosage: SOME DF SOME TIME(S) ORAL
     Route: 048

REACTIONS (6)
  - ANGIOPATHY [None]
  - CONDITION AGGRAVATED [None]
  - GASTRIC ULCER PERFORATION [None]
  - IATROGENIC INJURY [None]
  - PURPURA [None]
  - RESPIRATORY DISORDER [None]
